FAERS Safety Report 10503542 (Version 1)
Quarter: 2014Q4

REPORT INFORMATION
  Report Type: Spontaneous
  Country: US (occurrence: None)
  Receive Date: 20141007
  Receipt Date: 20141007
  Transmission Date: 20150528
  Serious: Yes (Life-Threatening, Hospitalization)
  Sender: FDA-Public Use
  Company Number: None

PATIENT
  Age: 12 Year
  Sex: Female
  Weight: 61.69 kg

DRUGS (5)
  1. MONTELUKAST [Suspect]
     Active Substance: MONTELUKAST SODIUM
     Indication: ASTHMA
     Dosage: 1   1 @ BEDTIME  BY MOUTH
     Route: 048
     Dates: start: 20020316, end: 20140605
  2. MONTELUKAST [Suspect]
     Active Substance: MONTELUKAST SODIUM
     Indication: HYPERSENSITIVITY
     Dosage: 1   1 @ BEDTIME  BY MOUTH
     Route: 048
     Dates: start: 20020316, end: 20140605
  3. MONTELUKAST [Suspect]
     Active Substance: MONTELUKAST SODIUM
     Indication: RESPIRATORY SYNCYTIAL VIRUS INFECTION
     Dosage: 1   1 @ BEDTIME  BY MOUTH
     Route: 048
     Dates: start: 20020316, end: 20140605
  4. MULTIVITAMIN [Concomitant]
     Active Substance: VITAMINS
  5. OMEGA 3 [Concomitant]
     Active Substance: OMEGA-3 FATTY ACIDS

REACTIONS (5)
  - Self-injurious ideation [None]
  - Intentional self-injury [None]
  - Laceration [None]
  - Pain in extremity [None]
  - Intentional overdose [None]

NARRATIVE: CASE EVENT DATE: 20140713
